FAERS Safety Report 5934139-6 (Version None)
Quarter: 2008Q4

REPORT INFORMATION
  Report Type: 
  Country: None (occurrence: None)
  Receive Date: 20081029
  Receipt Date: 20081024
  Transmission Date: 20090506
  Serious: Yes (Death)
  Sender: FDA-Public Use
  Company Number: A0753968A

PATIENT
  Age: 81 Year
  Sex: Female

DRUGS (1)
  1. SERETIDE [Suspect]

REACTIONS (1)
  - DEATH [None]
